FAERS Safety Report 8263580-4 (Version None)
Quarter: 2012Q2

REPORT INFORMATION
  Report Type: 
  Country: None (occurrence: None)
  Receive Date: 20120405
  Receipt Date: 20120402
  Transmission Date: 20120825
  Serious: Yes (Death, Hospitalization)
  Sender: FDA-Public Use
  Company Number: GW-ABBOTT-12P-143-0920854-00

PATIENT
  Sex: Female

DRUGS (5)
  1. ZIDOVUDINE [Concomitant]
     Indication: HIV INFECTION
     Route: 048
     Dates: start: 20111027
  2. COTRIM [Concomitant]
     Indication: PROPHYLAXIS
     Route: 048
     Dates: start: 20111027
  3. LAMIVUDINE [Concomitant]
     Indication: HIV INFECTION
     Route: 048
     Dates: start: 20111027
  4. KALETRA [Suspect]
     Indication: HIV INFECTION
     Dosage: 200/50 MG
     Route: 048
     Dates: start: 20111027
  5. FOLIC ACID [Concomitant]
     Indication: VITAMIN SUPPLEMENTATION
     Route: 048
     Dates: start: 20111027

REACTIONS (1)
  - DEATH [None]
